FAERS Safety Report 10721001 (Version 1)
Quarter: 2015Q1

REPORT INFORMATION
  Report Type: Spontaneous
  Country: US (occurrence: US)
  Receive Date: 20150119
  Receipt Date: 20150119
  Transmission Date: 20150721
  Serious: No
  Sender: FDA-Public Use
  Company Number: US-GE HEALTHCARE MEDICAL DIAGNOSTICS-OSCN-PR-1405S-0109

PATIENT
  Age: 53 Year
  Sex: Female

DRUGS (7)
  1. VITAMIN D [Suspect]
     Active Substance: CHOLECALCIFEROL
  2. MOBIC [Concomitant]
     Active Substance: MELOXICAM
  3. OMNISCAN [Suspect]
     Active Substance: GADODIAMIDE
     Indication: DIAGNOSTIC PROCEDURE
  4. MULTIVITAMINS [Concomitant]
     Active Substance: VITAMINS
  5. FLEXERIL [Concomitant]
     Active Substance: CYCLOBENZAPRINE HYDROCHLORIDE
  6. CALCIUM TABLETS [Concomitant]
  7. OMNISCAN [Suspect]
     Active Substance: GADODIAMIDE
     Indication: TINNITUS
     Route: 042
     Dates: start: 20140523, end: 20140523

REACTIONS (1)
  - Throat irritation [Unknown]

NARRATIVE: CASE EVENT DATE: 20140523
